FAERS Safety Report 10474625 (Version 2)
Quarter: 2014Q4

REPORT INFORMATION
  Report Type: Report from Study
  Country: US (occurrence: US)
  Receive Date: 20140925
  Receipt Date: 20141001
  Transmission Date: 20150528
  Serious: Yes (Other)
  Sender: FDA-Public Use
  Company Number: US-ROCHE-1464365

PATIENT
  Age: 51 Year
  Sex: Female
  Weight: 99.88 kg

DRUGS (10)
  1. LORATADINE. [Concomitant]
     Active Substance: LORATADINE
     Route: 048
  2. BIOTIN [Concomitant]
     Active Substance: BIOTIN
     Route: 065
  3. ADVIL [Concomitant]
     Active Substance: IBUPROFEN
     Indication: NASOPHARYNGITIS
     Route: 065
  4. DILTIAZEM [Concomitant]
     Active Substance: DILTIAZEM
     Indication: BLOOD PRESSURE INCREASED
     Route: 048
  5. ERIVEDGE [Suspect]
     Active Substance: VISMODEGIB
     Indication: BASAL CELL CARCINOMA
  6. TRAMADOL [Concomitant]
     Active Substance: TRAMADOL
     Indication: ARTHRITIS
     Route: 048
  7. ATORVASTATIN [Concomitant]
     Active Substance: ATORVASTATIN
     Indication: BLOOD CHOLESTEROL
     Route: 048
  8. ERIVEDGE [Suspect]
     Active Substance: VISMODEGIB
     Indication: BASAL CELL NAEVUS SYNDROME
     Route: 048
     Dates: start: 201406
  9. FLUTICASONE PROPIONATE. [Concomitant]
     Active Substance: FLUTICASONE PROPIONATE
     Indication: HYPERSENSITIVITY
     Route: 045
  10. HYDROCHLOROTHIAZIDE. [Concomitant]
     Active Substance: HYDROCHLOROTHIAZIDE
     Indication: FLUID RETENTION
     Route: 048

REACTIONS (9)
  - Platelet count decreased [Unknown]
  - Swelling [Recovered/Resolved]
  - Abdominal pain [Recovering/Resolving]
  - Musculoskeletal chest pain [Recovered/Resolved]
  - Diarrhoea [Not Recovered/Not Resolved]
  - Alanine aminotransferase increased [Recovering/Resolving]
  - Abdominal pain upper [Not Recovered/Not Resolved]
  - White blood cell count increased [Recovering/Resolving]
  - Pain [Recovered/Resolved]

NARRATIVE: CASE EVENT DATE: 201406
